FAERS Safety Report 5613804-4 (Version None)
Quarter: 2008Q1

REPORT INFORMATION
  Report Type: 
  Country: None (occurrence: None)
  Receive Date: 20080205
  Receipt Date: 20080116
  Transmission Date: 20080703
  Serious: Yes (Hospitalization)
  Sender: FDA-Public Use
  Company Number: PHHY2008JP01091

PATIENT

DRUGS (1)
  1. TEGRETOL [Suspect]
     Indication: PAIN MANAGEMENT
     Dosage: 200 MG' THREE TIMES DAILY
     Route: 048

REACTIONS (3)
  - DEPRESSED LEVEL OF CONSCIOUSNESS [None]
  - DYSARTHRIA [None]
  - INCORRECT DOSE ADMINISTERED [None]
